FAERS Safety Report 4446173-6 (Version None)
Quarter: 2004Q3

REPORT INFORMATION
  Report Type: 
  Country: None (occurrence: None)
  Receive Date: 20040907
  Receipt Date: 20030916
  Transmission Date: 20050211
  Serious: Yes (Death, Other)
  Sender: FDA-Public Use
  Company Number: US-JNJFOC-20040807508

PATIENT
  Age: 43 Year
  Sex: Female

DRUGS (4)
  1. CYCLOBENZAPRINE HYDROCHLORIDE [Suspect]
     Indication: SUICIDE ATTEMPT
     Dosage: ORAL
     Route: 048
  2. VICODIN [Suspect]
     Indication: SUICIDE ATTEMPT
  3. OXYCODONE (LONG-ACTING) (OXYCODONE) [Suspect]
     Indication: SUICIDE ATTEMPT
  4. VALDECOXIB [Suspect]
     Indication: SUICIDE ATTEMPT

REACTIONS (8)
  - AGITATION [None]
  - BODY TEMPERATURE INCREASED [None]
  - COMA [None]
  - COMPLETED SUICIDE [None]
  - DRUG SCREEN POSITIVE [None]
  - HEART RATE INCREASED [None]
  - HYPOTENSION [None]
  - OXYGEN SATURATION DECREASED [None]
